FAERS Safety Report 10413298 (Version 2)
Quarter: 2014Q3

REPORT INFORMATION
  Report Type: Spontaneous
  Country: TR (occurrence: TR)
  Receive Date: 20140827
  Receipt Date: 20140827
  Transmission Date: 20150326
  Serious: No
  Sender: FDA-Public Use
  Company Number: TR-PFIZER INC-2014227763

PATIENT
  Age: 81 Year
  Sex: Female
  Weight: 94 kg

DRUGS (17)
  1. NEURONTIN [Suspect]
     Active Substance: GABAPENTIN
     Dosage: 800 MG, 2X/DAY
  2. NEURONTIN [Suspect]
     Active Substance: GABAPENTIN
     Dosage: 400 MG, 2X/DAY
  3. LIPITOR [Concomitant]
     Active Substance: ATORVASTATIN CALCIUM
  4. CYMBALTA [Concomitant]
     Active Substance: DULOXETINE HYDROCHLORIDE
  5. THIOCTACID [Concomitant]
     Active Substance: .ALPHA.-LIPOIC ACID
  6. EBIXA [Concomitant]
     Active Substance: MEMANTINE HYDROCHLORIDE
  7. LEVOTIRON [Concomitant]
     Active Substance: LEVOTHYROXINE SODIUM
  8. COVERSYL [Concomitant]
     Active Substance: PERINDOPRIL
  9. CARDOPAN [Concomitant]
  10. ASPIRIN. [Concomitant]
     Active Substance: ASPIRIN
  11. ARICEPT [Concomitant]
     Active Substance: DONEPEZIL HYDROCHLORIDE
  12. BELOC ZOK [Concomitant]
     Active Substance: METOPROLOL SUCCINATE
  13. NEURONTIN [Suspect]
     Active Substance: GABAPENTIN
     Indication: DIABETIC NEUROPATHY
     Dosage: 800 MG, 3X/DAY
     Dates: start: 20140807
  14. MONOKET [Concomitant]
     Active Substance: ISOSORBIDE MONONITRATE
     Dosage: 20 MG, UNK
  15. NORVASC [Concomitant]
     Active Substance: AMLODIPINE BESYLATE
  16. NOVORAPID [Concomitant]
     Active Substance: INSULIN ASPART
  17. HUMULIN NOS [Concomitant]
     Active Substance: INSULIN HUMAN

REACTIONS (10)
  - Gait disturbance [Recovered/Resolved]
  - Ataxia [Recovered/Resolved]
  - Back pain [Recovered/Resolved]
  - Increased appetite [Recovered/Resolved]
  - Nervousness [Recovered/Resolved]
  - Vision blurred [Recovered/Resolved]
  - Somnolence [Recovered/Resolved]
  - Asthenia [Not Recovered/Not Resolved]
  - Dyskinesia [Recovered/Resolved]
  - Memory impairment [Recovered/Resolved]

NARRATIVE: CASE EVENT DATE: 20140810
